APPROVED DRUG PRODUCT: CIMETIDINE
Active Ingredient: CIMETIDINE
Strength: 400MG
Dosage Form/Route: TABLET;ORAL
Application: A074361 | Product #002
Applicant: CYCLE PHARMACEUTICALS LTD
Approved: Dec 23, 1994 | RLD: No | RS: No | Type: DISCN